FAERS Safety Report 10203685 (Version 2)
Quarter: 2014Q4

REPORT INFORMATION
  Report Type: Report from Study
  Country: IT (occurrence: IT)
  Receive Date: 20140529
  Receipt Date: 20141002
  Transmission Date: 20150528
  Serious: Yes (Death)
  Sender: FDA-Public Use
  Company Number: IT-BAYER-2014-074867

PATIENT
  Age: 86 Year
  Sex: Male
  Weight: 63 kg

DRUGS (10)
  1. IRON SULFATE [Concomitant]
     Active Substance: FERROUS SULFATE ANHYDROUS
     Dosage: 1 PILL SID
  2. FOLIC ACID. [Concomitant]
     Active Substance: FOLIC ACID
     Dosage: 5 MG SID
  3. SORAFENIB (RAF KINASE INHIBITOR) [Suspect]
     Active Substance: SORAFENIB
     Indication: HEPATOCELLULAR CARCINOMA
     Dosage: 200 MG, BID
     Dates: start: 20121005, end: 20121022
  4. OMEPRAZEN [Concomitant]
     Active Substance: OMEPRAZOLE
     Dosage: 20 MG SID
  5. AMINOSALICYLIC ACID [Concomitant]
     Active Substance: AMINOSALICYLIC ACID
     Dosage: 1 SUPPOSITORY SID
  6. SORAFENIB (RAF KINASE INHIBITOR) [Suspect]
     Active Substance: SORAFENIB
     Indication: HEPATOCELLULAR CARCINOMA
     Dosage: 400 MG, BID
     Dates: start: 20120912, end: 20121005
  7. DEOXYCHOLIC ACID [Concomitant]
     Active Substance: DEOXYCHOLIC ACID
     Dosage: 1 CUP BID
  8. MAGNESIUM [Concomitant]
     Active Substance: MAGNESIUM
     Dosage: 1 FL SID
  9. RIFAXIMIN [Concomitant]
     Active Substance: RIFAXIMIN
     Dosage: 400 MG, BID
  10. TOCOFEROL [Concomitant]
     Dosage: 400 MG SID

REACTIONS (1)
  - Chronic hepatic failure [Fatal]

NARRATIVE: CASE EVENT DATE: 20121104
